FAERS Safety Report 20245292 (Version 1)
Quarter: 2021Q4

REPORT INFORMATION
  Report Type: Spontaneous
  Country: ES (occurrence: ES)
  Receive Date: 20211229
  Receipt Date: 20211229
  Transmission Date: 20220303
  Serious: Yes (Other)
  Sender: FDA-Public Use
  Company Number: ES-ALLERGAN-2143841US

PATIENT
  Sex: Male

DRUGS (2)
  1. OZURDEX [Suspect]
     Active Substance: DEXAMETHASONE
     Indication: Retinal vein occlusion
     Dosage: 0.7 MG, SINGLE
     Route: 031
     Dates: start: 20211025, end: 20211029
  2. POVIDONE-IODINE [Concomitant]
     Active Substance: POVIDONE-IODINE

REACTIONS (2)
  - Retinal vein thrombosis [Unknown]
  - Endophthalmitis [Not Recovered/Not Resolved]

NARRATIVE: CASE EVENT DATE: 20210101
